FAERS Safety Report 7112416-3 (Version None)
Quarter: 2010Q4

REPORT INFORMATION
  Report Type: 
  Country: None (occurrence: None)
  Receive Date: 20101119
  Receipt Date: 20101108
  Transmission Date: 20110411
  Serious: No
  Sender: FDA-Public Use
  Company Number: A0888802A

PATIENT
  Age: 51 Year
  Sex: Male

DRUGS (2)
  1. AVODART [Suspect]
     Indication: BENIGN PROSTATIC HYPERPLASIA
     Dosage: 1TAB PER DAY
     Route: 048
     Dates: start: 20091001, end: 20101001
  2. NO CONCURRENT MEDICATION [Concomitant]

REACTIONS (1)
  - POLLAKIURIA [None]
